FAERS Safety Report 19498052 (Version 1)
Quarter: 2021Q3

REPORT INFORMATION
  Report Type: Not Available
  Country: None (occurrence: None)
  Receive Date: 20210706
  Receipt Date: 20210706
  Transmission Date: 20211014
  Serious: No
  Sender: FDA-Public Use
  Company Number: US-AKORN-168566

PATIENT
  Sex: Female

DRUGS (1)
  1. OFLOXACIN. [Suspect]
     Active Substance: OFLOXACIN

REACTIONS (3)
  - Iris hyperpigmentation [Recovered/Resolved]
  - Eye swelling [Recovered/Resolved]
  - Mydriasis [Recovered/Resolved]
